FAERS Safety Report 16904586 (Version 3)
Quarter: 2020Q4

REPORT INFORMATION
  Report Type: Spontaneous
  Country: RU (occurrence: RU)
  Receive Date: 20191010
  Receipt Date: 20201211
  Transmission Date: 20210113
  Serious: Yes (Death, Life-Threatening, Other)
  Sender: FDA-Public Use
  Company Number: RU-SA-2019SA280442

PATIENT

DRUGS (31)
  1. CONCOR [Concomitant]
     Active Substance: BISOPROLOL FUMARATE
     Indication: HYPERTENSION
     Dosage: UNK
     Dates: start: 20190204, end: 20190228
  2. NORMODIPINE [Concomitant]
     Active Substance: AMLODIPINE BESYLATE
     Indication: HYPERTENSION
     Dosage: UNK
     Dates: start: 20190204, end: 20190228
  3. ALLOPURINOL. [Concomitant]
     Active Substance: ALLOPURINOL
     Indication: PROPHYLAXIS
  4. MAGNESII SULFAS [Concomitant]
     Active Substance: MAGNESIUM SULFATE, UNSPECIFIED FORM
     Dosage: UNK
     Dates: start: 20190212, end: 20190301
  5. ACTRAPID [Concomitant]
     Active Substance: INSULIN HUMAN
     Dosage: UNK
     Dates: start: 20190212, end: 20190301
  6. POTASSIUM CHLORIDE. [Concomitant]
     Active Substance: POTASSIUM CHLORIDE
     Dosage: UNK
     Dates: start: 20190207, end: 20190223
  7. GLASDEGIB [Concomitant]
     Active Substance: GLASDEGIB
     Dosage: UNK
     Dates: start: 20190301
  8. PANANGIN [Concomitant]
     Active Substance: MAGNESIUM ASPARTATE\POTASSIUM ASPARTATE
     Dosage: UNK
     Dates: start: 20190212, end: 20190301
  9. FUROSEMIDE. [Concomitant]
     Active Substance: FUROSEMIDE
     Dosage: UNK
     Dates: start: 20190222, end: 20190301
  10. PARACETAMOL [Concomitant]
     Active Substance: ACETAMINOPHEN
     Dosage: UNK
     Dates: start: 20190222, end: 20190301
  11. CLEXANE [Suspect]
     Active Substance: ENOXAPARIN SODIUM
     Indication: THROMBOSIS
     Dosage: UNK
     Dates: start: 20190205, end: 20190301
  12. CYTARABINE. [Suspect]
     Active Substance: CYTARABINE
     Indication: ACUTE MYELOID LEUKAEMIA
     Dosage: 100 MG/M2
     Route: 042
     Dates: start: 20190219, end: 20190226
  13. OMEPRAZOLE. [Concomitant]
     Active Substance: OMEPRAZOLE
     Indication: GASTRITIS PROPHYLAXIS
     Dosage: UNK
     Dates: start: 20190204, end: 20190301
  14. STEROFUNDIN [Concomitant]
     Active Substance: CALCIUM CHLORIDE\MAGNESIUM CHLORIDE\POTASSIUM CHLORIDE\SODIUM ACETATE\SODIUM CHLORIDE
     Indication: PROPHYLAXIS
  15. AMIKACIN. [Concomitant]
     Active Substance: AMIKACIN
     Dosage: UNK
     Dates: start: 20190215, end: 20190218
  16. ONDANSETRON [Concomitant]
     Active Substance: ONDANSETRON
     Dosage: UNK
     Dates: start: 20190219, end: 20190301
  17. CLEXANE [Suspect]
     Active Substance: ENOXAPARIN SODIUM
     Indication: THROMBOSIS
  18. TIENAM [Concomitant]
     Active Substance: CILASTATIN SODIUM\IMIPENEM
     Dosage: UNK
     Dates: start: 20190204, end: 20190301
  19. DAUNORUBICIN [Suspect]
     Active Substance: DAUNORUBICIN
     Indication: ACUTE MYELOID LEUKAEMIA
     Dosage: 60 MG/M2, QD
     Route: 042
     Dates: start: 20190219, end: 20190221
  20. LEVOFLOXACIN. [Concomitant]
     Active Substance: LEVOFLOXACIN
     Dosage: UNK
     Dates: start: 20190226, end: 20190301
  21. AMPHOTERICIN B. [Concomitant]
     Active Substance: AMPHOTERICIN B
     Dosage: UNK
     Dates: start: 20190228, end: 20190301
  22. ALLOPURINOL. [Concomitant]
     Active Substance: ALLOPURINOL
     Indication: TUMOUR LYSIS SYNDROME
     Dosage: UNK
     Dates: start: 20190204, end: 20190301
  23. STEROFUNDIN [Concomitant]
     Active Substance: CALCIUM CHLORIDE\MAGNESIUM CHLORIDE\POTASSIUM CHLORIDE\SODIUM ACETATE\SODIUM CHLORIDE
     Indication: TUMOUR LYSIS SYNDROME
     Dosage: UNK
     Dates: start: 20190204, end: 20190301
  24. FLUCONAZOLE. [Concomitant]
     Active Substance: FLUCONAZOLE
     Indication: ANTIFUNGAL TREATMENT
     Dosage: UNK
     Dates: start: 20190204, end: 20190301
  25. METRONIDAZOLE. [Concomitant]
     Active Substance: METRONIDAZOLE
     Dosage: 500 MG, TID
     Route: 042
     Dates: start: 20190301, end: 20190301
  26. RINGER [CALCIUM CHLORIDE;POTASSIUM CHLORIDE] [Concomitant]
     Dosage: UNK
     Dates: start: 20190204, end: 20190301
  27. GLUCOSA [GLUCOSE] [Concomitant]
     Active Substance: ANHYDROUS DEXTROSE
     Dosage: UNK
     Dates: start: 20190212, end: 20190301
  28. IMIPENEM [Concomitant]
     Active Substance: IMIPENEM
     Dosage: UNK
     Dates: start: 20190204, end: 20190301
  29. PANCREATIN [Concomitant]
     Active Substance: PANCRELIPASE
     Dosage: UNK
     Dates: start: 20190204, end: 20190301
  30. STEROFUNDIN B [Concomitant]
     Dosage: UNK
     Dates: start: 20190222, end: 20190301
  31. POTASSIUM CHLORIDE. [Concomitant]
     Active Substance: POTASSIUM CHLORIDE
     Dosage: UNK
     Dates: start: 20190223, end: 20190301

REACTIONS (6)
  - Febrile neutropenia [Fatal]
  - Intestinal haemorrhage [Fatal]
  - Disseminated intravascular coagulation [Unknown]
  - Haematochezia [Unknown]
  - Disease progression [Unknown]
  - Multiple organ dysfunction syndrome [Unknown]

NARRATIVE: CASE EVENT DATE: 20190228
